FAERS Safety Report 10795252 (Version 1)
Quarter: 2015Q1

REPORT INFORMATION
  Report Type: Spontaneous
  Country: US (occurrence: US)
  Receive Date: 20150214
  Receipt Date: 20150214
  Transmission Date: 20150721
  Serious: No
  Sender: FDA-Public Use
  Company Number: US-GLAXOSMITHKLINE-A1065531A

PATIENT

DRUGS (1)
  1. NICORETTE [Suspect]
     Active Substance: NICOTINE
     Indication: EX-TOBACCO USER
     Dates: start: 20140315, end: 20140315

REACTIONS (7)
  - Paraesthesia oral [Recovered/Resolved]
  - Drug administration error [Unknown]
  - Urticaria [Unknown]
  - Throat tightness [Recovered/Resolved]
  - Urticaria [Recovering/Resolving]
  - Pain [Recovering/Resolving]
  - Hypersensitivity [Unknown]

NARRATIVE: CASE EVENT DATE: 20140315
